FAERS Safety Report 8883327 (Version 1)
Quarter: 2012Q4

REPORT INFORMATION
  Report Type: 
  Country: US (occurrence: US)
  Receive Date: 20121102
  Receipt Date: 20121102
  Transmission Date: 20130627
  Serious: Yes (Other)
  Sender: FDA-Public Use
  Company Number: CHPA2012US011608

PATIENT
  Age: 83 Year
  Sex: Female

DRUGS (1)
  1. DESENEX PRESCRIPTIONSTRENGTH ANTIFPOWDER [Suspect]
     Indication: PROPHYLAXIS
     Dosage: Unk, Unk, for years
     Route: 061

REACTIONS (3)
  - Nail bed infection [Recovered/Resolved]
  - Off label use [Unknown]
  - Incorrect drug administration duration [Unknown]
